FAERS Safety Report 4474929-2 (Version None)
Quarter: 2004Q3

REPORT INFORMATION
  Report Type: 
  Country: None (occurrence: None)
  Receive Date: 20040923
  Receipt Date: 20040706
  Transmission Date: 20050211
  Serious: No
  Sender: FDA-Public Use
  Company Number: USA040771876

PATIENT
  Age: 61 Year
  Sex: Male

DRUGS (3)
  1. FORTEO [Suspect]
     Indication: OSTEOPOROSIS
  2. LIPITOR [Concomitant]
  3. ALACE (RAMIPRIL) [Concomitant]

REACTIONS (2)
  - BONE DENSITY DECREASED [None]
  - DRUG EFFECT DECREASED [None]
